FAERS Safety Report 20222220 (Version 2)
Quarter: 2022Q1

REPORT INFORMATION
  Report Type: Spontaneous
  Country: US (occurrence: US)
  Receive Date: 20211223
  Receipt Date: 20220118
  Transmission Date: 20220424
  Serious: No
  Sender: FDA-Public Use
  Company Number: US-Blueprint Medicines Corporation-SP-US-2021-002500

PATIENT
  Age: 51 Year
  Sex: Female

DRUGS (22)
  1. AYVAKIT [Suspect]
     Active Substance: AVAPRITINIB
     Indication: Malignant mast cell neoplasm
     Route: 048
     Dates: start: 20200701
  2. AYVAKIT [Suspect]
     Active Substance: AVAPRITINIB
     Route: 048
  3. VITAMIN D3 [Concomitant]
     Active Substance: CHOLECALCIFEROL
     Indication: Product used for unknown indication
     Dosage: 2,000 UNIT
     Route: 065
     Dates: start: 20150713
  4. CELEXA [Concomitant]
     Active Substance: CITALOPRAM HYDROBROMIDE
     Indication: Product used for unknown indication
     Route: 048
     Dates: start: 20150713
  5. CELEXA [Concomitant]
     Active Substance: CITALOPRAM HYDROBROMIDE
     Route: 048
     Dates: start: 20210729
  6. GASTROCROM [Concomitant]
     Active Substance: CROMOLYN SODIUM
     Indication: Product used for unknown indication
     Route: 048
     Dates: start: 20180806
  7. OPTICROM [Concomitant]
     Active Substance: CROMOLYN SODIUM
     Indication: Product used for unknown indication
     Route: 065
     Dates: start: 20150713
  8. VITAMIN B12 [Concomitant]
     Active Substance: CYANOCOBALAMIN
     Indication: Product used for unknown indication
     Route: 048
  9. ZOFRAN [Concomitant]
     Active Substance: ONDANSETRON HYDROCHLORIDE
     Indication: Product used for unknown indication
     Route: 065
     Dates: start: 20180820, end: 20180827
  10. ALPHA LIPOIC ACID [Concomitant]
     Active Substance: .ALPHA.-LIPOIC ACID
     Indication: Product used for unknown indication
     Route: 048
  11. EPIPEN [Concomitant]
     Active Substance: EPINEPHRINE
     Indication: Product used for unknown indication
     Dosage: 0.3MG/0.3 ML
     Route: 065
     Dates: start: 20200420
  12. Pepcid AC PO [Concomitant]
     Indication: Product used for unknown indication
     Route: 048
  13. Glutathione Misc [Concomitant]
     Indication: Product used for unknown indication
     Route: 065
  14. ATARAX [Concomitant]
     Active Substance: HYDROXYZINE HYDROCHLORIDE
     Indication: Dermatitis allergic
     Route: 048
     Dates: start: 20210827
  15. XYZAL [Concomitant]
     Active Substance: LEVOCETIRIZINE DIHYDROCHLORIDE
     Indication: Product used for unknown indication
     Route: 048
  16. ATIVAN [Concomitant]
     Active Substance: LORAZEPAM
     Indication: Product used for unknown indication
     Route: 048
     Dates: start: 20201221
  17. NARCAN [Concomitant]
     Active Substance: NALOXONE HYDROCHLORIDE
     Indication: Product used for unknown indication
     Route: 045
     Dates: start: 20211130, end: 20211230
  18. PROTONIX [Concomitant]
     Active Substance: PANTOPRAZOLE SODIUM
     Indication: Product used for unknown indication
     Route: 048
  19. ALDACTONE [Concomitant]
     Active Substance: SPIRONOLACTONE
     Indication: Product used for unknown indication
     Route: 048
     Dates: start: 20150713
  20. ULTRAM [Concomitant]
     Active Substance: TRAMADOL HYDROCHLORIDE
     Indication: Product used for unknown indication
     Route: 048
     Dates: start: 20211130, end: 20211230
  21. ZYFLO [Concomitant]
     Active Substance: ZILEUTON
     Indication: Product used for unknown indication
     Route: 048
     Dates: start: 20210226
  22. ZYFLO [Concomitant]
     Active Substance: ZILEUTON
     Route: 048
     Dates: start: 20210403

REACTIONS (10)
  - Bone pain [Not Recovered/Not Resolved]
  - Visual impairment [Not Recovered/Not Resolved]
  - Arthritis [Not Recovered/Not Resolved]
  - Abdominal discomfort [Not Recovered/Not Resolved]
  - COVID-19 [Not Recovered/Not Resolved]
  - Back disorder [Not Recovered/Not Resolved]
  - Pyrexia [Not Recovered/Not Resolved]
  - Neck pain [Recovering/Resolving]
  - Arthralgia [Recovering/Resolving]
  - Thyroid mass [Unknown]

NARRATIVE: CASE EVENT DATE: 20210713
